FAERS Safety Report 25256917 (Version 1)
Quarter: 2025Q2

REPORT INFORMATION
  Report Type: Spontaneous
  Country: CN (occurrence: CN)
  Receive Date: 20250430
  Receipt Date: 20250430
  Transmission Date: 20250717
  Serious: Yes (Hospitalization)
  Sender: FRESENIUS KABI
  Company Number: CN-FreseniusKabi-FK202506282

PATIENT
  Age: 86 Year
  Sex: Male
  Weight: 38 kg

DRUGS (1)
  1. KABIVEN [Suspect]
     Active Substance: ALANINE\ARGININE\ASPARTIC ACID\CALCIUM CHLORIDE\DEXTROSE MONOHYDRATE\GLUTAMIC ACID\GLYCINE\HISTIDINE
     Indication: Nutritional supplementation
     Dosage: THERAPY START TIME: 11:30?ROA: PUMP INJECTION?FOA- INJECTION
     Dates: start: 20250420, end: 20250420

REACTIONS (3)
  - Dyspnoea [Recovering/Resolving]
  - Chest discomfort [Recovering/Resolving]
  - Chest pain [Recovering/Resolving]

NARRATIVE: CASE EVENT DATE: 20250420
